FAERS Safety Report 9985140 (Version 1)
Quarter: 2014Q1

REPORT INFORMATION
  Report Type: Report from Study
  Country: US (occurrence: US)
  Receive Date: 20140307
  Receipt Date: 20140307
  Transmission Date: 20141002
  Serious: No
  Sender: FDA-Public Use
  Company Number: US-ABBVIE-14P-163-1186643-00

PATIENT
  Age: 58 Year
  Sex: Male

DRUGS (9)
  1. HUMIRA [Suspect]
     Indication: RHEUMATOID ARTHRITIS
     Dosage: ON THE 13TH AND 27THE OF EVERY MONTH
     Dates: start: 201310
  2. GABAPENTIN [Concomitant]
     Indication: NEURALGIA
  3. HYDROXYCHLOROQUININE [Concomitant]
     Indication: RHEUMATOID ARTHRITIS
  4. DICLOFENAC [Concomitant]
     Indication: PRODUCT USED FOR UNKNOWN INDICATION
  5. LANTUS [Concomitant]
     Indication: DIABETES MELLITUS
     Dosage: IN THE MORNING
  6. NOVOLOG [Concomitant]
     Indication: DIABETES MELLITUS
     Dosage: INSULIN; BASED ON SLIDING SCALE BLOOD SUGAR READING BEFORE MEALS
  7. OXYCODONE [Concomitant]
     Indication: PAIN
     Dosage: AS NEEDED
  8. MORPHINE [Concomitant]
     Indication: PAIN
  9. LISINOPRIL [Concomitant]
     Indication: HYPERTENSION

REACTIONS (3)
  - Inappropriate schedule of drug administration [Not Recovered/Not Resolved]
  - Rheumatoid arthritis [Not Recovered/Not Resolved]
  - Wrong technique in drug usage process [Not Recovered/Not Resolved]
